FAERS Safety Report 19240943 (Version 2)
Quarter: 2021Q3

REPORT INFORMATION
  Report Type: Spontaneous
  Country: US (occurrence: US)
  Receive Date: 20210511
  Receipt Date: 20210702
  Transmission Date: 20211014
  Serious: Yes (Other)
  Sender: FDA-Public Use
  Company Number: US-UCBSA-2021016356

PATIENT
  Age: 74 Year
  Sex: Female
  Weight: 109 kg

DRUGS (1)
  1. CIMZIA [Suspect]
     Active Substance: CERTOLIZUMAB PEGOL
     Indication: PSORIASIS
     Dosage: 400 MILLIGRAM
     Dates: start: 20210316

REACTIONS (5)
  - Headache [Recovered/Resolved]
  - Respiratory distress [Recovered/Resolved]
  - Fatigue [Unknown]
  - Visual impairment [Unknown]
  - Therapeutic response unexpected [Unknown]

NARRATIVE: CASE EVENT DATE: 202103
